FAERS Safety Report 18092400 (Version 1)
Quarter: 2020Q3

REPORT INFORMATION
  Report Type: Spontaneous
  Country: US (occurrence: US)
  Receive Date: 20200730
  Receipt Date: 20200730
  Transmission Date: 20201103
  Serious: Yes (Hospitalization, Other)
  Sender: FDA-Public Use
  Company Number: US-MACLEODS PHARMACEUTICALS US LTD-MAC2020027473

PATIENT

DRUGS (6)
  1. SODIUM CHLORIDE. [Concomitant]
     Active Substance: SODIUM CHLORIDE
     Indication: CORNEAL DEGENERATION
     Dosage: UNK, 4 HRS
     Route: 065
  2. TRIAMCINOLONE [Suspect]
     Active Substance: TRIAMCINOLONE
     Indication: PRODUCT USED FOR UNKNOWN INDICATION
     Dosage: UNK,EVERY, INTRAOPERATIVE
     Route: 065
  3. PREDNISOLONE. [Suspect]
     Active Substance: PREDNISOLONE
     Indication: APHAKIA
  4. SODIUM CHLORIDE. [Concomitant]
     Active Substance: SODIUM CHLORIDE
     Indication: APHAKIA
  5. DEXAMETHASONE. [Suspect]
     Active Substance: DEXAMETHASONE
     Indication: PRODUCT USED FOR UNKNOWN INDICATION
     Dosage: UNK, INTRAOPERATIVE
     Route: 057
  6. PREDNISOLONE. [Suspect]
     Active Substance: PREDNISOLONE
     Indication: CORNEAL DEGENERATION
     Dosage: UNK, QID, PREDNISOLONE ACETATE 1% PROLONGED STEROID USE
     Route: 047

REACTIONS (2)
  - Rhegmatogenous retinal detachment [Recovering/Resolving]
  - Cytomegalovirus chorioretinitis [Recovered/Resolved]
